FAERS Safety Report 14926125 (Version 4)
Quarter: 2018Q3

REPORT INFORMATION
  Report Type: Spontaneous
  Country: US (occurrence: US)
  Receive Date: 20180523
  Receipt Date: 20180907
  Transmission Date: 20181010
  Serious: No
  Sender: FDA-Public Use
  Company Number: US-BIOGEN-2018BI00559698

PATIENT
  Age: 38 Year
  Sex: Male

DRUGS (3)
  1. AVONEX [Suspect]
     Active Substance: INTERFERON BETA-1A
     Dosage: HAS COMPLETED TITRATION DOSING
     Route: 030
  2. AVONEX [Suspect]
     Active Substance: INTERFERON BETA-1A
     Indication: MULTIPLE SCLEROSIS
     Route: 030
     Dates: start: 20180413
  3. AVONEX [Suspect]
     Active Substance: INTERFERON BETA-1A
     Dosage: HAS COMPLETED THREE TITRATED DOSES
     Route: 065
     Dates: start: 20180413

REACTIONS (7)
  - Gait disturbance [Recovered/Resolved]
  - Influenza like illness [Recovered/Resolved]
  - Pyrexia [Recovered/Resolved]
  - Dizziness [Recovered/Resolved]
  - Inadequate aseptic technique in use of product [Recovered/Resolved]
  - Diplopia [Unknown]
  - Chills [Recovered/Resolved]

NARRATIVE: CASE EVENT DATE: 20180414
